FAERS Safety Report 18654096 (Version 1)
Quarter: 2020Q4

REPORT INFORMATION
  Report Type: Spontaneous
  Country: US (occurrence: US)
  Receive Date: 20201223
  Receipt Date: 20201223
  Transmission Date: 20210114
  Serious: Yes (Hospitalization)
  Sender: FDA-Public Use
  Company Number: None

PATIENT
  Age: 57 Year
  Sex: Male
  Weight: 110 kg

DRUGS (5)
  1. FUROSEMIDE 20MG [Concomitant]
     Active Substance: FUROSEMIDE
  2. AMLODPINE 10MG [Concomitant]
  3. GABAPENTIN 300MG [Concomitant]
     Active Substance: GABAPENTIN
  4. JANUVIA [Suspect]
     Active Substance: SITAGLIPTIN PHOSPHATE
     Indication: DIABETES MELLITUS
     Route: 048
     Dates: end: 20201221
  5. OMEPRAZOLE 40MG [Concomitant]
     Active Substance: OMEPRAZOLE

REACTIONS (5)
  - Fournier^s gangrene [None]
  - Penile swelling [None]
  - Penile pain [None]
  - Scrotal pain [None]
  - Scrotal swelling [None]

NARRATIVE: CASE EVENT DATE: 20201221
